FAERS Safety Report 21784280 (Version 1)
Quarter: 2022Q4

REPORT INFORMATION
  Report Type: Spontaneous
  Country: US (occurrence: US)
  Receive Date: 20221227
  Receipt Date: 20221227
  Transmission Date: 20230113
  Serious: Yes (Other)
  Sender: FDA-Public Use
  Company Number: US-PFIZER INC-PV202200129634

PATIENT
  Age: 87 Year
  Sex: Female

DRUGS (3)
  1. XELJANZ XR [Suspect]
     Active Substance: TOFACITINIB CITRATE
     Dosage: 11 MG
  2. TAMIFLU [Suspect]
     Active Substance: OSELTAMIVIR PHOSPHATE
     Dosage: UNK
  3. CORTISONE [Concomitant]
     Active Substance: CORTISONE

REACTIONS (7)
  - Joint fluid drainage [Unknown]
  - Dysstasia [Unknown]
  - Visual impairment [Unknown]
  - Influenza [Unknown]
  - Malaise [Unknown]
  - Confusional state [Unknown]
  - Fatigue [Unknown]
